FAERS Safety Report 19904193 (Version 1)
Quarter: 2021Q4

REPORT INFORMATION
  Report Type: Spontaneous
  Country: PE (occurrence: PE)
  Receive Date: 20211001
  Receipt Date: 20211001
  Transmission Date: 20220303
  Serious: Yes (Death, Hospitalization)
  Sender: FDA-Public Use
  Company Number: PE-BOEHRINGERINGELHEIM-2021-BI-129470

PATIENT
  Age: 83 Year
  Sex: Male

DRUGS (1)
  1. PRADAXA [Suspect]
     Active Substance: DABIGATRAN ETEXILATE MESYLATE
     Indication: Product used for unknown indication
     Dates: end: 202109

REACTIONS (1)
  - Haemorrhage [Fatal]

NARRATIVE: CASE EVENT DATE: 20210924
